FAERS Safety Report 5968847-8 (Version None)
Quarter: 2008Q4

REPORT INFORMATION
  Report Type: 
  Country: None (occurrence: None)
  Receive Date: 20081121
  Receipt Date: 20081121
  Transmission Date: 20090506
  Serious: Yes (Other)
  Sender: FDA-Public Use
  Company Number: None

PATIENT
  Age: 16 Year
  Sex: Female
  Weight: 62.5964 kg

DRUGS (2)
  1. TRAMADOL HCL [Suspect]
     Indication: SCOLIOSIS
     Dosage: 1 TABLET #377 DAILY PO
     Route: 048
     Dates: start: 20080916, end: 20081030
  2. CLARITIN [Concomitant]

REACTIONS (4)
  - DISCOMFORT [None]
  - EATING DISORDER [None]
  - GASTRITIS [None]
  - PAIN [None]
